APPROVED DRUG PRODUCT: DIETHYLSTILBESTROL
Active Ingredient: DIETHYLSTILBESTROL
Strength: 5MG
Dosage Form/Route: TABLET, DELAYED RELEASE;ORAL
Application: N004039 | Product #006
Applicant: ELI LILLY AND CO
Approved: Approved Prior to Jan 1, 1982 | RLD: No | RS: No | Type: DISCN